FAERS Safety Report 10174762 (Version 1)
Quarter: 2014Q2

REPORT INFORMATION
  Report Type: Spontaneous
  Country: US (occurrence: US)
  Receive Date: 20140515
  Receipt Date: 20140515
  Transmission Date: 20141212
  Serious: Yes (Hospitalization)
  Sender: FDA-Public Use
  Company Number: US-PFIZER INC-2014132900

PATIENT
  Age: 56 Year
  Sex: Female
  Weight: 59.86 kg

DRUGS (1)
  1. PROTONIX [Suspect]
     Dosage: 40 MG, DAILY

REACTIONS (2)
  - Chest pain [Unknown]
  - Back pain [Unknown]
